FAERS Safety Report 23264909 (Version 1)
Quarter: 2023Q4

REPORT INFORMATION
  Report Type: Spontaneous
  Country: IT (occurrence: IT)
  Receive Date: 20231206
  Receipt Date: 20231206
  Transmission Date: 20240109
  Serious: Yes (Hospitalization)
  Sender: FDA-Public Use
  Company Number: IT-BoehringerIngelheim-2023-BI-275914

PATIENT
  Age: 17 Year
  Sex: Female
  Weight: 56 kg

DRUGS (23)
  1. CLONIDINE [Suspect]
     Active Substance: CLONIDINE
     Indication: Palliative sedation
  2. MORPHINE [Suspect]
     Active Substance: MORPHINE
     Indication: Palliative sedation
     Dosage: MORPHINE
     Route: 048
  3. MORPHINE [Suspect]
     Active Substance: MORPHINE
     Indication: Ewing^s sarcoma
  4. MORPHINE [Suspect]
     Active Substance: MORPHINE
     Indication: Pain
  5. PREGABALIN [Suspect]
     Active Substance: PREGABALIN
     Indication: Ewing^s sarcoma
  6. PREGABALIN [Suspect]
     Active Substance: PREGABALIN
     Indication: Pain
  7. MIDAZOLAM [Suspect]
     Active Substance: MIDAZOLAM
     Indication: Palliative sedation
  8. OMEPRAZOLE [Suspect]
     Active Substance: OMEPRAZOLE
     Indication: Ewing^s sarcoma
  9. OMEPRAZOLE [Suspect]
     Active Substance: OMEPRAZOLE
     Indication: Pain
  10. FENTANYL [Suspect]
     Active Substance: FENTANYL\FENTANYL CITRATE
     Indication: Ewing^s sarcoma
     Route: 062
  11. FENTANYL [Suspect]
     Active Substance: FENTANYL\FENTANYL CITRATE
     Indication: Pain
  12. CLOZAPINE [Suspect]
     Active Substance: CLOZAPINE
     Indication: Psychotic disorder
     Dosage: 12.5 MG X 2 /DIE Q12H
     Route: 048
     Dates: start: 20220903
  13. CLOZAPINE [Suspect]
     Active Substance: CLOZAPINE
     Route: 048
     Dates: end: 20220913
  14. ACETAMINOPHEN [Suspect]
     Active Substance: ACETAMINOPHEN
     Indication: Ewing^s sarcoma
     Dosage: PRN
  15. ACETAMINOPHEN [Suspect]
     Active Substance: ACETAMINOPHEN
     Indication: Pain
  16. DEXAMETHASONE [Suspect]
     Active Substance: DEXAMETHASONE
     Indication: Ewing^s sarcoma
  17. DEXAMETHASONE [Suspect]
     Active Substance: DEXAMETHASONE
     Indication: Pain
  18. COTRIMOXAZOLE [Suspect]
     Active Substance: SULFAMETHOXAZOLE\TRIMETHOPRIM
     Indication: Ewing^s sarcoma
  19. COTRIMOXAZOLE [Suspect]
     Active Substance: SULFAMETHOXAZOLE\TRIMETHOPRIM
     Indication: Pain
  20. ONDANSETRON [Suspect]
     Active Substance: ONDANSETRON
     Indication: Ewing^s sarcoma
  21. ONDANSETRON [Suspect]
     Active Substance: ONDANSETRON
     Indication: Pain
  22. DULOXETINE [Suspect]
     Active Substance: DULOXETINE
     Indication: Ewing^s sarcoma
  23. DULOXETINE [Suspect]
     Active Substance: DULOXETINE
     Indication: Pain

REACTIONS (15)
  - Anxiety [Unknown]
  - Pain [Not Recovered/Not Resolved]
  - Vomiting [Unknown]
  - Pyrexia [Unknown]
  - Nausea [Recovering/Resolving]
  - Psychomotor hyperactivity [Unknown]
  - Dyspnoea [Recovering/Resolving]
  - Feeling of despair [Unknown]
  - Urine output decreased [Unknown]
  - Decreased appetite [Unknown]
  - Asthenia [Unknown]
  - Haematuria [Unknown]
  - Pain [Not Recovered/Not Resolved]
  - Dizziness [Recovering/Resolving]
  - Movement disorder [Recovering/Resolving]

NARRATIVE: CASE EVENT DATE: 20220101
